FAERS Safety Report 21790143 (Version 1)
Quarter: 2022Q4

REPORT INFORMATION
  Report Type: Spontaneous
  Country: US (occurrence: None)
  Receive Date: 20221228
  Receipt Date: 20221228
  Transmission Date: 20230113
  Serious: No
  Sender: FDA-Public Use
  Company Number: None

PATIENT
  Age: 6 Year
  Sex: Male
  Weight: 20 kg

DRUGS (9)
  1. DUPIXENT [Suspect]
     Active Substance: DUPILUMAB
     Indication: Dermatitis atopic
     Dosage: OTHER FREQUENCY : ONCE EVERY 4 WEEKS;?
     Route: 058
     Dates: start: 20221212
  2. cetriazine 1mg/1ml [Concomitant]
  3. EUCRISA [Concomitant]
     Active Substance: CRISABOROLE
  4. hydrocortisone 0.5% cream [Concomitant]
  5. hydroxyzine 10mg/5ml [Concomitant]
  6. MUPIROCIN [Concomitant]
     Active Substance: MUPIROCIN
  7. pimecrolimus 1% [Concomitant]
  8. TACROLIMUS 0.1% [Concomitant]
     Active Substance: TACROLIMUS
  9. TRIAMCINOLONE [Concomitant]
     Active Substance: TRIAMCINOLONE

REACTIONS (1)
  - Pruritus [None]

NARRATIVE: CASE EVENT DATE: 20221228
